FAERS Safety Report 8381682 (Version 2)
Quarter: 2013Q1

REPORT INFORMATION
  Report Type: Spontaneous
  Country: US (occurrence: US)
  Receive Date: 20120201
  Receipt Date: 20130125
  Transmission Date: 20140127
  Serious: No
  Sender: FDA-Public Use
  Company Number: US-BIOGENIDEC-2012BI003140

PATIENT
  Sex: Female

DRUGS (1)
  1. AVONEX [Suspect]
     Indication: MULTIPLE SCLEROSIS
     Route: 030
     Dates: start: 20060601

REACTIONS (5)
  - Skin wrinkling [Not Recovered/Not Resolved]
  - Stress [Unknown]
  - Headache [Recovered/Resolved]
  - Anxiety [Not Recovered/Not Resolved]
  - Influenza like illness [Recovered/Resolved]
